FAERS Safety Report 9424294 (Version 4)
Quarter: 2014Q4

REPORT INFORMATION
  Report Type: Spontaneous
  Country: JP (occurrence: JP)
  Receive Date: 20130729
  Receipt Date: 20141202
  Transmission Date: 20150529
  Serious: Yes (Life-Threatening, Hospitalization, Disabling, Other)
  Sender: FDA-Public Use
  Company Number: JP-BAYER-2013-088960

PATIENT
  Age: 63 Year
  Sex: Male

DRUGS (13)
  1. MIRIPLATIN [Suspect]
     Active Substance: MIRIPLATIN
     Indication: THERAPEUTIC EMBOLISATION
     Dosage: UNK
     Route: 013
     Dates: start: 20140705
  2. HYPEN [Concomitant]
     Active Substance: ETODOLAC
     Dosage: DAILY DOSE 400 MG
     Route: 048
  3. MERLACTONE KOBAYASHI KAO [Concomitant]
     Indication: HYPERTENSION
     Dosage: DAILY DOSE 25 MG
     Route: 048
  4. MERLACTONE KOBAYASHI KAO [Concomitant]
     Indication: ASCITES
  5. ANTEBATE [Concomitant]
     Active Substance: BETAMETHASONE DIPROPIONATE
     Indication: PALMAR-PLANTAR ERYTHRODYSAESTHESIA SYNDROME
     Dosage: UNK
     Route: 061
     Dates: start: 20130613, end: 20130706
  6. JANUVIA [Concomitant]
     Active Substance: SITAGLIPTIN PHOSPHATE
     Indication: DIABETES MELLITUS
     Dosage: DAILY DOSE 50 MG
     Route: 048
  7. NEXAVAR [Suspect]
     Active Substance: SORAFENIB
     Indication: HEPATOCELLULAR CARCINOMA
     Dosage: DAILY DOSE 400 MG
     Route: 048
     Dates: start: 20130611, end: 20130704
  8. HIRUDOID [Concomitant]
     Active Substance: GLYCOSAMINOGLYCANS
     Indication: DRUG TOXICITY PROPHYLAXIS
     Dosage: UNK
     Route: 061
     Dates: start: 20130613, end: 20130706
  9. LASIX [Concomitant]
     Active Substance: FUROSEMIDE
     Indication: HYPERTENSION
     Dosage: DAILY DOSE 20 MG
     Route: 048
  10. MIRIPLATIN [Suspect]
     Active Substance: MIRIPLATIN
     Indication: THERAPEUTIC EMBOLISATION
     Dosage: DAILY DOSE 71.65 MG
     Route: 013
     Dates: start: 20130527, end: 20130527
  11. URSO [Concomitant]
     Active Substance: URSODIOL
     Indication: HEPATIC CIRRHOSIS
     Dosage: DAILY DOSE 600 MG
     Route: 048
  12. LASIX [Concomitant]
     Active Substance: FUROSEMIDE
     Indication: ASCITES
  13. LACTULOSE. [Concomitant]
     Active Substance: LACTULOSE
     Dosage: DAILY DOSE 180 ML
     Route: 048

REACTIONS (9)
  - Interstitial lung disease [Not Recovered/Not Resolved]
  - Protein total increased [Recovered/Resolved]
  - White blood cell count increased [Recovered/Resolved]
  - Blood urea increased [Unknown]
  - Condition aggravated [None]
  - Oesophageal varices haemorrhage [Recovered/Resolved]
  - Cerebral infarction [Recovering/Resolving]
  - Metastases to lung [None]
  - Ascites [None]

NARRATIVE: CASE EVENT DATE: 20130627
